FAERS Safety Report 8050015 (Version 6)
Quarter: 2013Q1

REPORT INFORMATION
  Report Type: Spontaneous
  Country: US (occurrence: US)
  Receive Date: 20110722
  Receipt Date: 20130102
  Transmission Date: 20140127
  Serious: Yes (Hospitalization, Congenital Anomaly, Other)
  Sender: FDA-Public Use
  Company Number: US-PFIZER INC-2011159814

PATIENT
  Sex: Male
  Weight: 2 kg

DRUGS (4)
  1. ZOLOFT [Suspect]
     Dosage: 50 MG, 1X/DAY
     Route: 064
     Dates: start: 200607, end: 200610
  2. SERTRALINE HCL [Suspect]
     Dosage: UNK
     Route: 064
  3. AMBIEN [Concomitant]
     Indication: SLEEP DISORDER
     Dosage: 10 MG, PRO RE NATA
     Route: 064
     Dates: start: 20070419
  4. PRENATAL VITAMINS [Concomitant]
     Dosage: ONE ON MORNING
     Route: 064
     Dates: start: 20070426

REACTIONS (10)
  - Maternal exposure timing unspecified [Unknown]
  - Atrial septal defect [Unknown]
  - Pulmonary hypertension [Unknown]
  - Respiratory distress [Unknown]
  - Ventricular hypertrophy [Unknown]
  - Hepatomegaly [Unknown]
  - Cor triatriatum [Recovered/Resolved]
  - Pulmonary congestion [Unknown]
  - Tachypnoea [Unknown]
  - Congenital anomaly [Unknown]
